FAERS Safety Report 6871226-2 (Version None)
Quarter: 2010Q3

REPORT INFORMATION
  Report Type: 
  Country: None (occurrence: None)
  Receive Date: 20100723
  Receipt Date: 20100712
  Transmission Date: 20110219
  Serious: Yes (Hospitalization, Other)
  Sender: FDA-Public Use
  Company Number: US-PFIZER INC-2010045152

PATIENT
  Sex: Female

DRUGS (9)
  1. CHANTIX [Suspect]
     Indication: SMOKING CESSATION THERAPY
     Dosage: UNK
     Route: 048
     Dates: start: 20081129, end: 20081231
  2. PROZAC [Concomitant]
     Indication: DEPRESSION
     Dosage: UNK
     Dates: start: 20081001, end: 20090601
  3. PROZAC [Concomitant]
     Indication: ANXIETY
  4. ALBUTEROL [Concomitant]
     Indication: ASTHMA
     Dosage: UNK
     Dates: start: 20050101, end: 20090101
  5. FLOVENT [Concomitant]
     Indication: ASTHMA
     Dosage: UNK
     Dates: start: 20050101, end: 20090101
  6. AMOXICILLIN [Concomitant]
     Indication: EAR INFECTION
     Dosage: UNK
     Dates: start: 20060101, end: 20090101
  7. EFFEXOR [Concomitant]
     Indication: DEPRESSION
     Dosage: UNK
     Dates: start: 20060101, end: 20090101
  8. PAXIL [Concomitant]
     Indication: DEPRESSION
     Dosage: UNK
     Dates: start: 20040101, end: 20100101
  9. PAXIL [Concomitant]
     Indication: ANXIETY

REACTIONS (4)
  - ANXIETY [None]
  - DEPRESSION [None]
  - MENTAL DISORDER [None]
  - SUICIDE ATTEMPT [None]
